FAERS Safety Report 10474335 (Version 4)
Quarter: 2014Q4

REPORT INFORMATION
  Report Type: Report from Study
  Country: US (occurrence: US)
  Receive Date: 20140924
  Receipt Date: 20141208
  Transmission Date: 20150528
  Serious: Yes (Hospitalization)
  Sender: FDA-Public Use
  Company Number: US-MERCK-1409USA009249

PATIENT
  Age: 2 Year
  Sex: Male
  Weight: 12.4 kg

DRUGS (30)
  1. VORINOSTAT [Suspect]
     Active Substance: VORINOSTAT
     Indication: MEDULLOBLASTOMA
     Dosage: 230 MG/M2, ON DAYS 1-4, CYCLE: 3
     Route: 048
     Dates: start: 20140826, end: 20140829
  2. ISOTRETINOIN [Suspect]
     Active Substance: ISOTRETINOIN
     Indication: MEDULLOBLASTOMA
     Dosage: 80 MG/M2, BID, ON DAYS 1-4, CYCLE 3
     Route: 048
     Dates: start: 20140826, end: 20140830
  3. METRONIDAZOLE. [Concomitant]
     Active Substance: METRONIDAZOLE
  4. ISOTRETINOIN [Suspect]
     Active Substance: ISOTRETINOIN
     Dosage: 80 MG/M2, BID, ON DAYS 1-4, CYCLE 1
     Route: 048
     Dates: start: 20140623, end: 20140626
  5. VINCRISTINE [Suspect]
     Active Substance: VINCRISTINE
     Indication: MEDULLOBLASTOMA
     Dosage: 0.05 MG/KG, ON DAYS 4, 11 AND 18, CYCLE 3
     Route: 042
     Dates: start: 20140829, end: 20140912
  6. ETOPOSIDE. [Suspect]
     Active Substance: ETOPOSIDE
     Indication: MEDULLOBLASTOMA
     Dosage: 2.5 MG/KG, 1 HR ON DAYS 4, 5 AND 6, CYCLE 3
     Route: 042
     Dates: start: 20140829, end: 20140831
  7. FUROSEMIDE. [Concomitant]
     Active Substance: FUROSEMIDE
  8. MORPHINE [Concomitant]
     Active Substance: MORPHINE
  9. POLYETHYLENE GLYCOL [Concomitant]
     Active Substance: POLYETHYLENE GLYCOLS
  10. CISPLATIN. [Suspect]
     Active Substance: CISPLATIN
     Dosage: 3.5 MG/KG, OVER 6HRS AND ON DAY 4, CYCLE: 1
     Route: 042
     Dates: start: 20140626, end: 20140626
  11. OXYCODONE [Concomitant]
     Active Substance: OXYCODONE
  12. VORINOSTAT [Suspect]
     Active Substance: VORINOSTAT
     Dosage: 230 MG/M2, ON DAYS 1-4, CYCLE 1
     Route: 048
     Dates: start: 20140623, end: 20140626
  13. VINCRISTINE [Suspect]
     Active Substance: VINCRISTINE
     Dosage: 0.05 MG/KG, ON DAYS 4, 11 AND 18, CYCLE 1
     Route: 042
     Dates: start: 20140626, end: 20140713
  14. CISPLATIN. [Suspect]
     Active Substance: CISPLATIN
     Indication: MEDULLOBLASTOMA
     Dosage: 3.5 MG/KG, OVER 6HRS AND DAY 4, CYCLE: 3
     Route: 042
     Dates: start: 20140829, end: 20140829
  15. NYSTATIN. [Concomitant]
     Active Substance: NYSTATIN
  16. ONDANSETRON HYDROCHLORIDE. [Concomitant]
     Active Substance: ONDANSETRON HYDROCHLORIDE
  17. SULFAMETHOXAZOLE (+) TRIMETHOPRIM [Concomitant]
     Active Substance: SULFAMETHOXAZOLE\TRIMETHOPRIM
  18. CYCLOPHOSPHAMIDE. [Suspect]
     Active Substance: CYCLOPHOSPHAMIDE
     Dosage: 60 MG/KG,OVER 1 HR ON DAY 5 AND 6, CYCLE: 1
     Route: 042
     Dates: start: 20140627, end: 20140628
  19. ETOPOSIDE. [Suspect]
     Active Substance: ETOPOSIDE
     Dosage: 2.5 MG/KG, 1 HR ON DAYS 4, 5 AND 6, CYCLE 1
     Route: 042
     Dates: start: 20140626, end: 20140628
  20. CEFTAZIDIME. [Concomitant]
     Active Substance: CEFTAZIDIME
  21. METOCLOPRAMIDE. [Concomitant]
     Active Substance: METOCLOPRAMIDE
  22. CYCLOPHOSPHAMIDE. [Concomitant]
     Active Substance: CYCLOPHOSPHAMIDE
  23. CYCLOPHOSPHAMIDE. [Suspect]
     Active Substance: CYCLOPHOSPHAMIDE
     Indication: MEDULLOBLASTOMA
     Dosage: 60 MG/KG,OVER 1 HR ON DAY 5 AND 6, CYCLE: 3
     Route: 042
     Dates: start: 20140830, end: 20140831
  24. HYDROXYZINE [Concomitant]
     Active Substance: HYDROXYZINE\HYDROXYZINE HYDROCHLORIDE
  25. TRIAMCINOLONE [Concomitant]
     Active Substance: TRIAMCINOLONE
  26. ISOTRETINOIN [Suspect]
     Active Substance: ISOTRETINOIN
  27. DIPHENHYDRAMINE HYDROCHLORIDE. [Concomitant]
     Active Substance: DIPHENHYDRAMINE HYDROCHLORIDE
  28. HYDROCORTISONE. [Concomitant]
     Active Substance: HYDROCORTISONE
  29. RANITIDINE HYDROCHLORIDE. [Concomitant]
     Active Substance: RANITIDINE HYDROCHLORIDE
  30. VINCRISTINE SULFATE. [Concomitant]
     Active Substance: VINCRISTINE SULFATE

REACTIONS (2)
  - Febrile neutropenia [Recovered/Resolved]
  - Device related infection [Recovered/Resolved]

NARRATIVE: CASE EVENT DATE: 20140916
